FAERS Safety Report 8410732-6 (Version None)
Quarter: 2012Q2

REPORT INFORMATION
  Report Type: 
  Country: None (occurrence: None)
  Receive Date: 20120605
  Receipt Date: 20120529
  Transmission Date: 20120825
  Serious: Yes (Hospitalization, Other)
  Sender: FDA-Public Use
  Company Number: BR-SANOFI-AVENTIS-2012SA038290

PATIENT
  Age: 75 Year
  Sex: Female
  Weight: 57 kg

DRUGS (8)
  1. CLIKSTAR [Suspect]
     Indication: DEVICE THERAPY
     Dates: start: 20070101
  2. LANTUS [Suspect]
     Indication: TYPE 2 DIABETES MELLITUS
     Route: 058
     Dates: start: 20070101
  3. ATACAND [Concomitant]
     Indication: BLOOD PRESSURE
     Route: 048
     Dates: start: 20100101
  4. VYTORIN [Concomitant]
     Route: 048
     Dates: start: 20100101
  5. METOPROLOL SUCCINATE [Concomitant]
     Indication: BLOOD PRESSURE
     Route: 048
     Dates: start: 20100101
  6. CLOPIDOGREL BISULFATE [Concomitant]
     Route: 048
     Dates: start: 20100101
  7. CLONAZEPAM [Concomitant]
     Route: 048
     Dates: start: 20070101
  8. AMARYL [Concomitant]
     Indication: TYPE 2 DIABETES MELLITUS
     Route: 048

REACTIONS (5)
  - FATIGUE [None]
  - FEELING HOT [None]
  - DYSPNOEA [None]
  - INFARCTION [None]
  - BACK PAIN [None]
